FAERS Safety Report 10009795 (Version 2)
Quarter: 2014Q1

REPORT INFORMATION
  Report Type: Spontaneous
  Country: US (occurrence: US)
  Receive Date: 20140312
  Receipt Date: 20140312
  Transmission Date: 20141002
  Serious: No
  Sender: FDA-Public Use
  Company Number: US-INCYTE CORPORATION-2013IN000072

PATIENT
  Age: 49 Year
  Sex: Male
  Weight: 78.01 kg

DRUGS (4)
  1. JAKAFI [Suspect]
     Indication: MYELOFIBROSIS
     Dosage: 15 MG, BID
     Route: 048
     Dates: start: 20121017
  2. COQ10 [Concomitant]
  3. OMEGA 3 [Concomitant]
  4. MVI [Concomitant]

REACTIONS (1)
  - Blood pressure increased [Unknown]
